FAERS Safety Report 15809374 (Version 2)
Quarter: 2019Q1

REPORT INFORMATION
  Report Type: Report from Study
  Country: None (occurrence: GR)
  Receive Date: 20190110
  Receipt Date: 20190130
  Transmission Date: 20190417
  Serious: Yes (Hospitalization, Other)
  Sender: FDA-Public Use
  Company Number: GR-ABBVIE-18S-066-2582008-00

PATIENT
  Age: 66 Year
  Sex: Male

DRUGS (16)
  1. DUODOPA [Suspect]
     Active Substance: CARBIDOPA\LEVODOPA
     Route: 050
  2. FLUDEX [Concomitant]
     Indication: PRODUCT USED FOR UNKNOWN INDICATION
     Route: 048
  3. DUODOPA [Suspect]
     Active Substance: CARBIDOPA\LEVODOPA
     Indication: PARKINSON^S DISEASE
     Dosage: MD:10.0ML; CR:4.7ML/H; ED: 2.2ML
     Route: 050
     Dates: start: 20161010
  4. LEPONEX [Concomitant]
     Active Substance: CLOZAPINE
     Indication: PRODUCT USED FOR UNKNOWN INDICATION
     Route: 048
  5. DUODOPA [Suspect]
     Active Substance: CARBIDOPA\LEVODOPA
     Dosage: MORNING DOSE:10 ML; CONTINUOUS RATE:2.8ML/H; EXTRA DOSE:2.2ML
     Route: 050
     Dates: start: 20190125
  6. LOSEC [Concomitant]
     Active Substance: OMEPRAZOLE
     Indication: PRODUCT USED FOR UNKNOWN INDICATION
     Route: 048
  7. DUODOPA [Suspect]
     Active Substance: CARBIDOPA\LEVODOPA
     Route: 050
  8. VITAMIN B [Concomitant]
     Active Substance: VITAMIN B
     Indication: PRODUCT USED FOR UNKNOWN INDICATION
     Route: 048
     Dates: start: 201808
  9. CILROTON [Concomitant]
     Indication: PRODUCT USED FOR UNKNOWN INDICATION
     Route: 048
  10. LEPONEX [Concomitant]
     Active Substance: CLOZAPINE
     Indication: PRODUCT USED FOR UNKNOWN INDICATION
     Route: 048
  11. ZOLOFT [Concomitant]
     Active Substance: SERTRALINE HYDROCHLORIDE
     Indication: DEPRESSION
     Route: 048
  12. DUODOPA [Suspect]
     Active Substance: CARBIDOPA\LEVODOPA
     Dosage: CONTINUOUS RATE:2.5ML/H
     Route: 050
     Dates: start: 20181231, end: 20190125
  13. DUODOPA [Suspect]
     Active Substance: CARBIDOPA\LEVODOPA
     Dosage: MD:10.0ML; CR:4.7ML/H; ED:2.2ML
     Route: 050
  14. DUODOPA [Suspect]
     Active Substance: CARBIDOPA\LEVODOPA
     Route: 050
     Dates: end: 20181219
  15. EXELON [Concomitant]
     Active Substance: RIVASTIGMINE TARTRATE
     Indication: PRODUCT USED FOR UNKNOWN INDICATION
     Route: 062
     Dates: start: 201808
  16. MADOPAR [Concomitant]
     Active Substance: BENSERAZIDE HYDROCHLORIDE\LEVODOPA
     Indication: PARKINSON^S DISEASE
     Dosage: HALF OF UNKNOWN EVERY 3 HOURS
     Route: 048
     Dates: start: 20181221

REACTIONS (18)
  - Dehydration [Recovered/Resolved]
  - Haematemesis [Recovered/Resolved]
  - Oesophageal food impaction [Recovered/Resolved]
  - Blood pressure decreased [Recovered/Resolved]
  - Pericardial effusion [Not Recovered/Not Resolved]
  - Fall [Recovered/Resolved]
  - Yellow skin [Recovered/Resolved]
  - Discoloured vomit [Recovered/Resolved]
  - Nephrolithiasis [Not Recovered/Not Resolved]
  - Haematemesis [Recovered/Resolved]
  - Cholelithiasis [Not Recovered/Not Resolved]
  - Incorrect route of product administration [Recovered/Resolved]
  - Feeding disorder [Recovered/Resolved]
  - Lower respiratory tract infection [Recovered/Resolved]
  - Device kink [Recovered/Resolved]
  - Device dislocation [Unknown]
  - Adrenal adenoma [Not Recovered/Not Resolved]
  - Asthenia [Not Recovered/Not Resolved]

NARRATIVE: CASE EVENT DATE: 20181123
